FAERS Safety Report 24891904 (Version 2)
Quarter: 2025Q2

REPORT INFORMATION
  Report Type: Report from Study
  Country: US (occurrence: US)
  Receive Date: 20250127
  Receipt Date: 20250409
  Transmission Date: 20250717
  Serious: Yes (Other)
  Sender: ABBVIE
  Company Number: US-ABBVIE-6054776

PATIENT
  Age: 6 Month
  Sex: Male
  Weight: 4 kg

DRUGS (10)
  1. ELAGOLIX [Suspect]
     Active Substance: ELAGOLIX
     Indication: Maternal exposure timing unspecified
     Route: 064
  2. VITAMIN K [Concomitant]
     Active Substance: PHYTONADIONE
     Indication: Product used for unknown indication
     Dates: start: 20240421
  3. HEPATITIS B VIRUS VACCINE [Concomitant]
     Active Substance: HEPATITIS B VIRUS VACCINE
     Indication: Hepatitis B
     Dates: start: 20240421
  4. DIPHTHERIA TOXOID NOS [Concomitant]
     Active Substance: CORYNEBACTERIUM DIPHTHERIAE TOXOID ANTIGEN (FORMALDEHYDE INACTIVATED)
     Indication: Diphtheria
     Dates: start: 20241104
  5. HAEMOPHILUS INFLUENZAE TYPE B [Concomitant]
     Active Substance: HAEMOPHILUS INFLUENZAE TYPE B
     Indication: Haemophilus influenzae type b immunisation
     Dates: start: 20241104
  6. BCG VACCINE [Concomitant]
     Active Substance: BCG VACCINE
     Indication: Poliomyelitis
     Dates: start: 20241104
  7. HUMAN ROTAVIRUS A [Concomitant]
     Active Substance: HUMAN ROTAVIRUS A
     Indication: Product used for unknown indication
     Dates: start: 20241028
  8. TETANUS TOXOID ADSORBED (VACCINE) [Concomitant]
     Active Substance: CLOSTRIDIUM TETANI TOXOID ANTIGEN (FORMALDEHYDE INACTIVATED)
     Indication: Tetanus
     Dates: start: 20241104
  9. Acellular pertussis vaccine [Concomitant]
     Indication: Product used for unknown indication
     Dates: start: 20241104
  10. PNEUMOCOCCAL VACCINE POLYVALENT NOS [Concomitant]
     Active Substance: PNEUMOCOCCAL VACCINE, POLYVALENT
     Indication: Pneumococcal immunisation
     Dates: start: 20241104

REACTIONS (5)
  - Umbilical hernia [Recovered/Resolved]
  - Gastrooesophageal reflux disease [Not Recovered/Not Resolved]
  - Dermatitis diaper [Unknown]
  - Foetal exposure during pregnancy [Unknown]
  - Umbilical granuloma [Recovered/Resolved]

NARRATIVE: CASE EVENT DATE: 20240101
